FAERS Safety Report 22353689 (Version 1)
Quarter: 2023Q2

REPORT INFORMATION
  Report Type: Other
  Country: CL (occurrence: None)
  Receive Date: 20230523
  Receipt Date: 20230523
  Transmission Date: 20230721
  Serious: Yes (Other)
  Sender: FDA-Public Use
  Company Number: CL-ROCHE-3349395

PATIENT
  Age: 65 Year
  Sex: Female

DRUGS (12)
  1. PERJETA [Suspect]
     Active Substance: PERTUZUMAB
     Indication: Breast cancer stage II
     Dosage: FREQUENCY WAS NOT REPORTED
     Route: 042
     Dates: start: 20221121
  2. PERJETA [Suspect]
     Active Substance: PERTUZUMAB
     Indication: HER2 positive breast cancer
  3. HERCEPTIN [Suspect]
     Active Substance: TRASTUZUMAB
     Indication: HER2 positive breast cancer
     Dosage: FREQUENCY WAS NOT REPORTED
     Route: 042
     Dates: start: 20221121
  4. HERCEPTIN [Suspect]
     Active Substance: TRASTUZUMAB
     Indication: Breast cancer stage II
  5. DOCETAXEL [Concomitant]
     Active Substance: DOCETAXEL
     Indication: HER2 positive breast cancer
     Dosage: FREQUENCY WAS NOT REPORTED
     Dates: start: 20221121
  6. DOCETAXEL [Concomitant]
     Active Substance: DOCETAXEL
     Indication: Breast cancer stage II
  7. ENALAPRIL [Concomitant]
     Active Substance: ENALAPRIL
     Indication: Hypertension
     Route: 048
  8. METFORMIN [Concomitant]
     Active Substance: METFORMIN HYDROCHLORIDE
     Indication: Type 2 diabetes mellitus
     Route: 048
  9. ZOPICLONE [Concomitant]
     Active Substance: ZOPICLONE
     Indication: Insomnia
     Dosage: DOSE NOT SPECIFIED
     Route: 048
  10. ASPIRIN [Concomitant]
     Active Substance: ASPIRIN
     Route: 048
  11. OMEPRAZOLE [Concomitant]
     Active Substance: OMEPRAZOLE
     Dosage: DOSE NOT SPECIFIED
     Route: 048
  12. CALCIUM [Concomitant]
     Active Substance: CALCIUM
     Dosage: DOSE NOT SPECIFIED
     Route: 048

REACTIONS (7)
  - Hypoaesthesia [Unknown]
  - Noninfective encephalitis [Unknown]
  - Metastases to central nervous system [Unknown]
  - Spinal fracture [Unknown]
  - Gait disturbance [Unknown]
  - Fatigue [Unknown]
  - Bone demineralisation [Unknown]

NARRATIVE: CASE EVENT DATE: 20230311
